FAERS Safety Report 12641977 (Version 2)
Quarter: 2017Q4

REPORT INFORMATION
  Report Type: Spontaneous
  Country: CA (occurrence: CA)
  Receive Date: 20160810
  Receipt Date: 20171011
  Transmission Date: 20180320
  Serious: Yes (Hospitalization)
  Sender: FDA-Public Use
  Company Number: CA-SA-2016SA143231

PATIENT
  Sex: Female
  Weight: 45 kg

DRUGS (9)
  1. PMS-ISONIAZID [Suspect]
     Active Substance: ISONIAZID
     Indication: TUBERCULOSIS
     Route: 048
     Dates: start: 20140131, end: 20140818
  2. ROFACT (RIFAMPICIN) [Suspect]
     Active Substance: RIFAMPIN
     Indication: TUBERCULOSIS
     Route: 048
     Dates: start: 20140131, end: 20140818
  3. ACETAMINOPHEN. [Concomitant]
     Active Substance: ACETAMINOPHEN
  4. BACLOFEN. [Concomitant]
     Active Substance: BACLOFEN
     Dosage: PRN
     Route: 048
  5. FLUCONAZOLE. [Concomitant]
     Active Substance: FLUCONAZOLE
     Route: 065
     Dates: start: 20140806, end: 20140827
  6. RABEPRAZOLE [Concomitant]
     Active Substance: RABEPRAZOLE
     Route: 048
  7. DIMENHYDRINATE. [Concomitant]
     Active Substance: DIMENHYDRINATE
  8. RIFADIN [Suspect]
     Active Substance: RIFAMPIN
     Indication: TUBERCULOSIS
     Route: 048
     Dates: start: 20140131, end: 20140818
  9. PYRIDOXINE [Concomitant]
     Active Substance: PYRIDOXINE

REACTIONS (6)
  - Diarrhoea [Recovered/Resolved]
  - Toxic epidermal necrolysis [Recovered/Resolved]
  - Vomiting [Recovered/Resolved]
  - Nausea [Recovered/Resolved]
  - Pyrexia [Recovered/Resolved]
  - Hypertension [Recovered/Resolved]

NARRATIVE: CASE EVENT DATE: 20140820
